FAERS Safety Report 4867696-1 (Version None)
Quarter: 2005Q4

REPORT INFORMATION
  Report Type: 
  Country: None (occurrence: None)
  Receive Date: 20051228
  Receipt Date: 20051213
  Transmission Date: 20060501
  Serious: Yes (Other)
  Sender: FDA-Public Use
  Company Number: US-JNJFOC-20051203071

PATIENT
  Age: 8 Decade
  Sex: Male

DRUGS (9)
  1. REMICADE [Suspect]
     Route: 042
  2. ARACEPT [Concomitant]
  3. PROSCAR [Concomitant]
  4. LOPRESSOR [Concomitant]
  5. NAMENDA [Concomitant]
  6. CAPOTEN [Concomitant]
  7. DIGOXIN [Concomitant]
  8. COUMADIN [Concomitant]
  9. FOLIC ACID [Concomitant]

REACTIONS (3)
  - CONDITION AGGRAVATED [None]
  - CONFUSIONAL STATE [None]
  - DEMENTIA ALZHEIMER'S TYPE [None]
